FAERS Safety Report 15928318 (Version 1)
Quarter: 2019Q1

REPORT INFORMATION
  Report Type: Spontaneous
  Country: US (occurrence: US)
  Receive Date: 20190206
  Receipt Date: 20190206
  Transmission Date: 20190417
  Serious: Yes (Other)
  Sender: FDA-Public Use
  Company Number: US-SA-2019SA030461

PATIENT

DRUGS (13)
  1. AMISULPRIDE [Suspect]
     Active Substance: AMISULPRIDE
  2. ATORVASTATIN [Suspect]
     Active Substance: ATORVASTATIN
  3. ROSUVASTATIN. [Suspect]
     Active Substance: ROSUVASTATIN
  4. PAROXETINE HYDROCHLORIDE. [Suspect]
     Active Substance: PAROXETINE HYDROCHLORIDE
  5. SIMVASTATIN. [Suspect]
     Active Substance: SIMVASTATIN
  6. DRONEDARONE [Suspect]
     Active Substance: DRONEDARONE
  7. LISINOPRIL. [Suspect]
     Active Substance: LISINOPRIL
  8. AMITRIPTYLINE HYDROCHLORIDE. [Suspect]
     Active Substance: AMITRIPTYLINE HYDROCHLORIDE
  9. TIKOSYN [Suspect]
     Active Substance: DOFETILIDE
  10. MINOCYCLINE HYDROCHLORIDE. [Suspect]
     Active Substance: MINOCYCLINE HYDROCHLORIDE
  11. SALBUTAMOL SULFATE [Suspect]
     Active Substance: ALBUTEROL SULFATE
  12. DOBUTAMINE [Suspect]
     Active Substance: DOBUTAMINE\DOBUTAMINE HYDROCHLORIDE
  13. MELOXICAM. [Suspect]
     Active Substance: MELOXICAM

REACTIONS (10)
  - Hyperphagia [Unknown]
  - Hallucination [Unknown]
  - Confusional state [Unknown]
  - Chest pain [Unknown]
  - Dermatitis [Unknown]
  - Cough [Unknown]
  - Hypersensitivity [Unknown]
  - Loss of consciousness [Unknown]
  - Swelling [Unknown]
  - Pruritus [Unknown]
